FAERS Safety Report 10256668 (Version 1)
Quarter: 2014Q2

REPORT INFORMATION
  Report Type: Report from Study
  Country: US (occurrence: US)
  Receive Date: 20140624
  Receipt Date: 20140624
  Transmission Date: 20141212
  Serious: Yes (Other)
  Sender: FDA-Public Use
  Company Number: US-ACTELION-A-US2014-100885

PATIENT
  Age: 73 Year
  Sex: Female

DRUGS (3)
  1. VENTAVIS [Suspect]
     Indication: PULMONARY ARTERIAL HYPERTENSION
     Dosage: 5 MCG, 6-9X/DAY
     Route: 055
     Dates: start: 20050819
  2. WARFARIN [Concomitant]
  3. REVATIO [Concomitant]

REACTIONS (2)
  - Fall [Unknown]
  - Rib fracture [Unknown]
